FAERS Safety Report 16824444 (Version 1)
Quarter: 2019Q3

REPORT INFORMATION
  Report Type: Spontaneous
  Country: US (occurrence: US)
  Receive Date: 20190918
  Receipt Date: 20190918
  Transmission Date: 20191005
  Serious: No
  Sender: FDA-Public Use
  Company Number: US-JNJFOC-20190920919

PATIENT
  Sex: Female

DRUGS (2)
  1. INVEGA SUSTENNA [Suspect]
     Active Substance: PALIPERIDONE PALMITATE
     Indication: SCHIZOPHRENIA
     Dosage: THERAPY WAS ONGOING
     Route: 030
  2. OLANZAPINE. [Concomitant]
     Active Substance: OLANZAPINE
     Route: 048

REACTIONS (5)
  - Hallucination [Not Recovered/Not Resolved]
  - Inappropriate schedule of product administration [Unknown]
  - Abnormal behaviour [Not Recovered/Not Resolved]
  - Feeling abnormal [Not Recovered/Not Resolved]
  - Off label use [Unknown]
